FAERS Safety Report 10653570 (Version 2)
Quarter: 2014Q4

REPORT INFORMATION
  Report Type: Report from Study
  Country: CA (occurrence: CA)
  Receive Date: 20141216
  Receipt Date: 20141218
  Transmission Date: 20150529
  Serious: Yes (Death, Other)
  Sender: FDA-Public Use
  Company Number: CA-ROCHE-1507813

PATIENT
  Sex: Female

DRUGS (13)
  1. CITALOPRAM [Concomitant]
     Active Substance: CITALOPRAM HYDROBROMIDE
  2. ACTEMRA [Suspect]
     Active Substance: TOCILIZUMAB
     Indication: RHEUMATOID ARTHRITIS
     Route: 042
     Dates: start: 20140923, end: 20141113
  3. PERCOCET [Concomitant]
     Active Substance: ACETAMINOPHEN\OXYCODONE HYDROCHLORIDE
  4. HYDROXYCHLOROQUINE [Concomitant]
     Active Substance: HYDROXYCHLOROQUINE
  5. METHOTREXATE [Concomitant]
     Active Substance: METHOTREXATE
  6. MORPHINE SR [Concomitant]
     Active Substance: MORPHINE
  7. ADVAIR HFA [Concomitant]
     Active Substance: FLUTICASONE PROPIONATE\SALMETEROL XINAFOATE
  8. VENTOLIN [Concomitant]
     Active Substance: ALBUTEROL SULFATE
  9. NABUMETONE. [Concomitant]
     Active Substance: NABUMETONE
  10. THYROXINE [Concomitant]
     Active Substance: LEVOTHYROXINE
  11. LOSEC [Concomitant]
     Active Substance: OMEPRAZOLE
  12. GABAPENTIN. [Concomitant]
     Active Substance: GABAPENTIN
  13. PREDNISONE. [Concomitant]
     Active Substance: PREDNISONE

REACTIONS (4)
  - Polyp [Unknown]
  - Infection [Fatal]
  - Immunodeficiency [Unknown]
  - Intestinal obstruction [Fatal]
